FAERS Safety Report 9142630 (Version 1)
Quarter: 2013Q1

REPORT INFORMATION
  Report Type: Report from Study
  Country: JP (occurrence: JP)
  Receive Date: 20130306
  Receipt Date: 20130306
  Transmission Date: 20140127
  Serious: Yes (Life-Threatening, Hospitalization, Other)
  Sender: FDA-Public Use
  Company Number: PHHY2012JP114893

PATIENT
  Age: 44 Year
  Sex: Female
  Weight: 56 kg

DRUGS (7)
  1. LEPONEX / CLOZARIL [Suspect]
     Indication: SCHIZOPHRENIA
     Dosage: 200 MG, DAILY
     Route: 048
     Dates: start: 20121113, end: 20121210
  2. LEPONEX / CLOZARIL [Suspect]
     Dosage: 250 MG, UNK
     Route: 048
     Dates: start: 20121113, end: 20121208
  3. PURSENNID [Concomitant]
     Dosage: 12 MG, UNK
     Route: 048
  4. AKINETON                                /AUS/ [Concomitant]
     Dosage: 1 MG, UNK
     Route: 048
  5. PYRETHIA//PROMETHAZINE HYDROCHLORIDE [Concomitant]
     Dosage: 25 MG, UNK
     Route: 048
  6. SILECE [Concomitant]
     Dosage: 1 MG, UNK
     Route: 048
  7. GOREI-SAN [Concomitant]
     Dosage: UNK
     Route: 048

REACTIONS (7)
  - Pulmonary embolism [Recovered/Resolved]
  - Cough [Recovered/Resolved]
  - Electrocardiogram ST segment abnormal [Recovered/Resolved]
  - Protein C decreased [Unknown]
  - Pyrexia [Unknown]
  - Upper respiratory tract inflammation [Unknown]
  - Leukopenia [Unknown]
